FAERS Safety Report 8329778-1 (Version None)
Quarter: 2012Q2

REPORT INFORMATION
  Report Type: 
  Country: None (occurrence: None)
  Receive Date: 20120502
  Receipt Date: 20091021
  Transmission Date: 20120825
  Serious: No
  Sender: FDA-Public Use
  Company Number: US-TEVA-2009011759

PATIENT
  Sex: Female
  Weight: 72.64 kg

DRUGS (5)
  1. NUVIGIL [Suspect]
     Indication: SLEEP APNOEA SYNDROME
     Dosage: 150 MILLIGRAM;
     Route: 048
     Dates: start: 20091014
  2. CLARINEX [Concomitant]
     Dates: start: 20080101
  3. NUVIGIL [Suspect]
  4. AZITHROMYCIN [Concomitant]
     Dates: start: 20081001
  5. AMLODIPINE [Concomitant]
     Dates: start: 20080101

REACTIONS (1)
  - DRUG INEFFECTIVE [None]
